FAERS Safety Report 8557162-4 (Version None)
Quarter: 2012Q3

REPORT INFORMATION
  Report Type: 
  Country: None (occurrence: None)
  Receive Date: 20120726
  Receipt Date: 20120726
  Transmission Date: 20120928
  Serious: Yes (Hospitalization)
  Sender: FDA-Public Use
  Company Number: None

PATIENT
  Sex: Male
  Weight: 13.9 kg

DRUGS (2)
  1. CYTARABINE [Suspect]
     Dosage: 7200 MG
  2. ELSPAR [Suspect]
     Dosage: 3600 UNIT
     Dates: end: 20120718

REACTIONS (7)
  - CAPILLARY NAIL REFILL TEST ABNORMAL [None]
  - PYREXIA [None]
  - TACHYCARDIA [None]
  - RESPIRATORY DISTRESS [None]
  - ANAPHYLACTIC REACTION [None]
  - HYPOTENSION [None]
  - DRUG HYPERSENSITIVITY [None]
